FAERS Safety Report 22158711 (Version 1)
Quarter: 2023Q1

REPORT INFORMATION
  Report Type: Spontaneous
  Country: GB (occurrence: GB)
  Receive Date: 20230331
  Receipt Date: 20230331
  Transmission Date: 20230418
  Serious: Yes (Other)
  Sender: FDA-Public Use
  Company Number: GB-UCBSA-2022007311

PATIENT
  Age: 62 Year
  Sex: Male
  Weight: 113 kg

DRUGS (19)
  1. OXALIPLATIN [Suspect]
     Active Substance: OXALIPLATIN
     Indication: Neoplasm
     Dosage: 180 MILLIGRAM(EV 2 WEEKS(QOW))
     Route: 042
     Dates: start: 20220119
  2. FLUOROURACIL [Suspect]
     Active Substance: FLUOROURACIL
     Indication: Neoplasm
     Dosage: UNK(5000 MG AND 900 MG, EV 2 WEEKS(QOW))
     Route: 042
     Dates: start: 20220119
  3. FLUOROURACIL [Suspect]
     Active Substance: FLUOROURACIL
     Dosage: 5000 MG, EVERY 2 WEEKS
     Route: 042
     Dates: start: 20220119
  4. LEUCOVORIN [Suspect]
     Active Substance: LEUCOVORIN
     Indication: Neoplasm
     Dosage: 870 MILLIGRAM, CYCLICAL( EV 2 WEEKS(QOW))
     Route: 042
     Dates: start: 20220119
  5. ATORVASTATIN [Concomitant]
     Active Substance: ATORVASTATIN
     Indication: Hypercholesterolaemia
     Dosage: 20 MILLIGRAM, ONCE A DAY (QD)
     Route: 048
     Dates: start: 2020
  6. CODEINE PHOSPHATE [Concomitant]
     Active Substance: CODEINE PHOSPHATE
     Indication: Pain
     Dosage: 30 MILLIGRAM, AS NECESSARY (PRN)
     Route: 065
     Dates: start: 2011
  7. DEXAMETHASONE [Concomitant]
     Active Substance: DEXAMETHASONE
     Indication: Product used for unknown indication
     Dosage: 4 MILLIGRAM, TWO TIMES A DAY(2X/DAY (BID))
     Route: 065
     Dates: start: 20220119
  8. DOMPERIDONE [Concomitant]
     Active Substance: DOMPERIDONE
     Indication: Product used for unknown indication
     Dosage: 10 MILLIGRAM, 3 TIMES A DAY( 3X/DAY (TID))
     Route: 065
     Dates: start: 20220119
  9. EMPAGLIFLOZIN [Concomitant]
     Active Substance: EMPAGLIFLOZIN
     Indication: Type 2 diabetes mellitus
     Dosage: 10 MILLIGRAM, ONCE DAILY (QD)
     Route: 048
     Dates: start: 202108
  10. GABAPENTIN [Concomitant]
     Active Substance: GABAPENTIN
     Indication: Cancer pain
     Dosage: 300 MILLIGRAM, 3 TIMES A DAY( 3X/DAY (TID))
     Route: 048
     Dates: start: 2020
  11. GLICLAZIDE [Concomitant]
     Active Substance: GLICLAZIDE
     Indication: Type 2 diabetes mellitus
     Dosage: 80 MILLIGRAM, TWO TIMES A DAY( 2X/DAY (BID))
     Route: 048
     Dates: start: 202110
  12. IBUPROFEN [Concomitant]
     Active Substance: IBUPROFEN
     Indication: Pain in extremity
     Dosage: 400 MILLIGRAM ONCE
     Route: 065
     Dates: start: 20220125, end: 20220125
  13. LEUCOVORIN [Concomitant]
     Active Substance: LEUCOVORIN
     Indication: Neoplasm
     Dosage: 870 MILLIGRAM EVERY 2 WEEKS
     Route: 042
     Dates: start: 20220119
  14. METFORMIN [Concomitant]
     Active Substance: METFORMIN HYDROCHLORIDE
     Indication: Type 2 diabetes mellitus
     Dosage: 500 MILLIGRAM, 3 TIMES A DAY( 3X/DAY (TID))
     Route: 048
     Dates: start: 2018
  15. MORPHINE SULFATE [Concomitant]
     Active Substance: MORPHINE SULFATE
     Indication: Pain
     Dosage: 10 MILLIGRAM, FOUR TIMES/DAY(4X/DAY (QID))
     Route: 065
     Dates: start: 20220125
  16. OMEPRAZOLE [Concomitant]
     Active Substance: OMEPRAZOLE
     Indication: Product used for unknown indication
     Dosage: 20 MILLIGRAM, ONCE A DAY (QD)
     Route: 065
  17. ACETAMINOPHEN [Concomitant]
     Active Substance: ACETAMINOPHEN
     Indication: Pain in extremity
     Dosage: 1 GRAM, ONCE DAILY (QD)
     Route: 065
     Dates: start: 20220125, end: 20220125
  18. SEMAGLUTIDE [Concomitant]
     Active Substance: SEMAGLUTIDE
     Indication: Type 2 diabetes mellitus
     Dosage: 14 MILLIGRAM, ONCE A DAY(QD)
     Route: 048
     Dates: start: 202108
  19. SOLIFENACIN [Concomitant]
     Active Substance: SOLIFENACIN
     Indication: Product used for unknown indication
     Dosage: 5 MILLIGRAM, ONCE A DAY(QD)
     Route: 065

REACTIONS (1)
  - Vascular device infection [Recovered/Resolved]

NARRATIVE: CASE EVENT DATE: 20220203
